FAERS Safety Report 6445084-4 (Version None)
Quarter: 2009Q4

REPORT INFORMATION
  Report Type: 
  Country: None (occurrence: None)
  Receive Date: 20091118
  Receipt Date: 20091106
  Transmission Date: 20100525
  Serious: Yes (Other)
  Sender: FDA-Public Use
  Company Number: GB-PFIZER INC-2009294083

PATIENT
  Age: 35 Year
  Sex: Female

DRUGS (1)
  1. CHAMPIX [Suspect]
     Indication: SMOKING CESSATION THERAPY
     Dosage: 0.5 MG, 2X/DAY
     Route: 048
     Dates: start: 20090909, end: 20090921

REACTIONS (5)
  - ANXIETY [None]
  - DEPERSONALISATION [None]
  - DYSPEPSIA [None]
  - MENTAL DISORDER [None]
  - NIGHTMARE [None]
